FAERS Safety Report 8595782-1 (Version None)
Quarter: 2012Q3

REPORT INFORMATION
  Report Type: 
  Country: None (occurrence: None)
  Receive Date: 20120815
  Receipt Date: 20120802
  Transmission Date: 20120928
  Serious: Yes (Other)
  Sender: FDA-Public Use
  Company Number: US-ELI_LILLY_AND_COMPANY-US201208001096

PATIENT
  Sex: Female

DRUGS (3)
  1. LANTUS [Concomitant]
     Dosage: 35 U, BID
     Route: 058
     Dates: start: 20120101
  2. HUMALOG [Suspect]
     Dosage: 35 U, PRN
  3. LANTUS [Concomitant]
     Dosage: UNK, UNKNOWN
     Dates: start: 19970101

REACTIONS (2)
  - BLINDNESS UNILATERAL [None]
  - EYE DISORDER [None]
